FAERS Safety Report 12758192 (Version 1)
Quarter: 2016Q3

REPORT INFORMATION
  Report Type: Spontaneous
  Country: US (occurrence: US)
  Receive Date: 20160916
  Receipt Date: 20160916
  Transmission Date: 20161109
  Serious: Yes (Hospitalization)
  Sender: FDA-Public Use
  Company Number: None

PATIENT
  Age: 70 Year
  Sex: Female
  Weight: 83 kg

DRUGS (1)
  1. CARFILZOMIB [Suspect]
     Active Substance: CARFILZOMIB
     Indication: PLASMA CELL MYELOMA
     Dosage: OTHER STRENGTH:;OTHER DOSE:;OTHER FREQUENCY:TWICE WEEKLY;OTHER ROUTE:
     Route: 042
     Dates: start: 20160912, end: 20160913

REACTIONS (3)
  - Dyspnoea [None]
  - Troponin increased [None]
  - Chest pain [None]

NARRATIVE: CASE EVENT DATE: 20160914
